FAERS Safety Report 18793856 (Version 1)
Quarter: 2021Q1

REPORT INFORMATION
  Report Type: Spontaneous
  Country: US (occurrence: US)
  Receive Date: 20210127
  Receipt Date: 20210127
  Transmission Date: 20210419
  Serious: Yes (Other)
  Sender: FDA-Public Use
  Company Number: US-PFIZER INC-2021059775

PATIENT
  Age: 80 Year
  Sex: Female
  Weight: 48.99 kg

DRUGS (1)
  1. DISOPYRAMIDE PHOSPHATE. [Suspect]
     Active Substance: DISOPYRAMIDE PHOSPHATE
     Indication: HYPERTROPHIC CARDIOMYOPATHY
     Dosage: 150 MG, 3X/DAY
     Dates: start: 202012

REACTIONS (12)
  - Cervix carcinoma [Unknown]
  - Hypoaesthesia [Unknown]
  - Drug ineffective [Unknown]
  - Peripheral swelling [Unknown]
  - Off label use [Unknown]
  - Cardiac failure congestive [Unknown]
  - Asthenia [Unknown]
  - Joint swelling [Unknown]
  - Chronic obstructive pulmonary disease [Unknown]
  - Uterine cancer [Unknown]
  - Fatigue [Unknown]
  - Dyspnoea [Unknown]

NARRATIVE: CASE EVENT DATE: 20201215
